FAERS Safety Report 25058790 (Version 1)
Quarter: 2025Q1

REPORT INFORMATION
  Report Type: Spontaneous
  Country: JP (occurrence: JP)
  Receive Date: 20250310
  Receipt Date: 20250310
  Transmission Date: 20250409
  Serious: Yes (Other)
  Sender: MERCK SHARP & DOHME LLC
  Company Number: JP-MSD-M2024-53562

PATIENT
  Age: 78 Year
  Sex: Female

DRUGS (1)
  1. SIVEXTRO [Suspect]
     Active Substance: TEDIZOLID PHOSPHATE
     Indication: Infection prophylaxis
     Dosage: DOSE DESCRIPTION : 200 MILLIGRAM, QD?DAILY DOSE : 200 MILLIGRAM
     Route: 048
     Dates: start: 2022

REACTIONS (4)
  - Optic neuritis [Unknown]
  - Visual acuity reduced [Unknown]
  - Colour blindness acquired [Unknown]
  - Cataract operation [Unknown]

NARRATIVE: CASE EVENT DATE: 20241101
